FAERS Safety Report 7455136-8 (Version None)
Quarter: 2011Q2

REPORT INFORMATION
  Report Type: 
  Country: None (occurrence: None)
  Receive Date: 20110503
  Receipt Date: 20110422
  Transmission Date: 20111010
  Serious: Yes (Hospitalization)
  Sender: FDA-Public Use
  Company Number: JP-SANOFI-AVENTIS-2011SA024976

PATIENT
  Age: 57 Year
  Sex: Male
  Weight: 56 kg

DRUGS (9)
  1. PARIET [Concomitant]
     Indication: PROPHYLAXIS AGAINST GASTROINTESTINAL ULCER
     Route: 048
     Dates: start: 20110207
  2. MAGLAX [Concomitant]
     Indication: CONSTIPATION
     Route: 048
     Dates: start: 20110215
  3. OXYCONTIN [Concomitant]
     Indication: CANCER PAIN
     Route: 048
     Dates: start: 20110224
  4. TS-1 [Suspect]
     Route: 048
     Dates: start: 20110317, end: 20110331
  5. SENNOSIDE A [Concomitant]
     Indication: CONSTIPATION
     Route: 048
     Dates: start: 20110308
  6. NAIXAN [Concomitant]
     Indication: CANCER PAIN
     Route: 048
     Dates: start: 20110215
  7. ELPLAT [Suspect]
     Route: 041
     Dates: start: 20110317, end: 20110317
  8. TS-1 [Suspect]
     Route: 048
     Dates: start: 20110224, end: 20110310
  9. ELPLAT [Suspect]
     Route: 041
     Dates: start: 20110224, end: 20110224

REACTIONS (1)
  - HYDRONEPHROSIS [None]
